FAERS Safety Report 5356197-2 (Version None)
Quarter: 2007Q2

REPORT INFORMATION
  Report Type: 
  Country: None (occurrence: None)
  Receive Date: 20070612
  Receipt Date: 20070531
  Transmission Date: 20071010
  Serious: Yes (Hospitalization)
  Sender: FDA-Public Use
  Company Number: JP-PFIZER INC-2007044969

PATIENT
  Sex: Female

DRUGS (14)
  1. DOXORUBICIN HCL [Suspect]
     Indication: LYMPHOMA
     Dosage: DAILY DOSE:72MG
     Route: 042
     Dates: start: 20060704, end: 20061025
  2. RITUXAN [Suspect]
     Indication: LYMPHOMA
     Dosage: DAILY DOSE:543MG
     Route: 042
     Dates: start: 20060704, end: 20061025
  3. ENDOXAN [Suspect]
     Indication: LYMPHOMA
     Dosage: DAILY DOSE:1080MG
     Route: 042
     Dates: start: 20060704, end: 20061025
  4. ONCOVIN [Suspect]
     Indication: LYMPHOMA
     Dosage: DAILY DOSE:2MG
     Route: 042
     Dates: start: 20060704, end: 20061025
  5. PREDONINE [Concomitant]
     Dosage: DAILY DOSE:100MG
     Route: 048
     Dates: start: 20060704, end: 20061025
  6. KYTRIL [Concomitant]
     Dosage: DAILY DOSE:3MG
     Route: 048
     Dates: start: 20060704, end: 20061025
  7. RESTAMIN [Concomitant]
     Dosage: DAILY DOSE:30MG
     Route: 048
     Dates: start: 20060704, end: 20061025
  8. ACETAMINOPHEN [Concomitant]
     Dosage: DAILY DOSE:500MG
     Route: 048
     Dates: start: 20060704, end: 20061025
  9. AMLODIN [Concomitant]
     Dosage: DAILY DOSE:5MG
     Route: 048
  10. LIPITOR [Concomitant]
     Dosage: DAILY DOSE:10MG
     Route: 048
  11. TAKEPRON [Concomitant]
     Dosage: DAILY DOSE:15MG
     Route: 048
  12. PURSENNID [Concomitant]
     Dosage: DAILY DOSE:24MG
     Route: 048
  13. DEPAS [Concomitant]
     Dosage: DAILY DOSE:.5MG
     Route: 048
  14. LOXONIN [Concomitant]
     Dosage: DAILY DOSE:60MG
     Route: 048

REACTIONS (1)
  - INTERSTITIAL LUNG DISEASE [None]
